FAERS Safety Report 8169377-8 (Version None)
Quarter: 2012Q1

REPORT INFORMATION
  Report Type: 
  Country: None (occurrence: None)
  Receive Date: 20120222
  Receipt Date: 20120209
  Transmission Date: 20120608
  Serious: Yes (Disabling, Other)
  Sender: FDA-Public Use
  Company Number: 2011MA002122

PATIENT
  Sex: Female
  Weight: 101.6057 kg

DRUGS (40)
  1. IBUPROFEN TABLETS [Concomitant]
  2. BUPROPION HCL [Concomitant]
  3. HYDROCODONE BITARTRATE AND ACETAMINOPHEN [Concomitant]
  4. NICOTINE TRANSDERMAL [Concomitant]
  5. ACCOLATE [Concomitant]
  6. METHOCARBAMOL [Concomitant]
  7. AMITRIPTYLINE HCL [Concomitant]
  8. ALPRAZOLAM [Concomitant]
  9. AMOXICILLIN [Concomitant]
  10. ERYTHROMYCIN [Concomitant]
  11. PROMETHAZINE [Concomitant]
  12. CLONAZEPAM [Concomitant]
  13. MARINOL [Concomitant]
  14. GABAPENTIN [Concomitant]
  15. AVELOX [Concomitant]
  16. OXYBUTRIN [Concomitant]
  17. NYSTATIN [Concomitant]
  18. KLONOPIN [Concomitant]
  19. LEVOTHYROXINE SODIUM [Concomitant]
  20. MELOXICAM [Concomitant]
  21. DRONABINOL [Concomitant]
  22. PROVENTIL [Concomitant]
  23. PREDNISONE TAB [Concomitant]
  24. CARISOPRODOL [Concomitant]
  25. INDERAL [Concomitant]
  26. TRAZODONE HCL [Concomitant]
  27. LORAZEPAM [Concomitant]
  28. AMITREX [Concomitant]
  29. DIAZEPAM [Concomitant]
  30. ALBUTEROL [Concomitant]
  31. LAMICTAL [Concomitant]
  32. SOMA [Concomitant]
  33. NASAREL [Concomitant]
  34. METOCLOPRAMIDE HYDROCHLORIDE [Suspect]
     Dates: start: 20070601, end: 20090401
  35. CYMBALTA [Concomitant]
  36. TIZANIDINE HCL [Concomitant]
  37. RANITIDINE [Concomitant]
  38. ZOLOFT [Concomitant]
  39. NITROGLYCERIN [Concomitant]
  40. REQUIP [Concomitant]

REACTIONS (46)
  - RESTLESS LEGS SYNDROME [None]
  - MYOCLONUS [None]
  - PERSONALITY CHANGE [None]
  - APHASIA [None]
  - MUSCULAR WEAKNESS [None]
  - WITHDRAWAL SYNDROME [None]
  - PHONOPHOBIA [None]
  - INSOMNIA [None]
  - DYSPHAGIA [None]
  - HAEMORRHAGE [None]
  - PARAESTHESIA [None]
  - EYE MOVEMENT DISORDER [None]
  - ECONOMIC PROBLEM [None]
  - DYSKINESIA [None]
  - DIPLOPIA [None]
  - VOMITING [None]
  - PARALYSIS [None]
  - DIZZINESS [None]
  - BLOOD PRESSURE DIASTOLIC INCREASED [None]
  - SKIN HAEMORRHAGE [None]
  - CHOKING [None]
  - HYPOAESTHESIA [None]
  - DEAFNESS BILATERAL [None]
  - FALL [None]
  - ANXIETY [None]
  - MUSCLE TWITCHING [None]
  - BLEPHAROSPASM [None]
  - VISION BLURRED [None]
  - MOVEMENT DISORDER [None]
  - SPEECH DISORDER [None]
  - DEAFNESS [None]
  - SYNCOPE [None]
  - DEPRESSION [None]
  - TREMOR [None]
  - INCORRECT DRUG ADMINISTRATION DURATION [None]
  - TONGUE SPASM [None]
  - SOCIAL AVOIDANT BEHAVIOUR [None]
  - ATAXIA [None]
  - OESOPHAGEAL DISORDER [None]
  - DIPLEGIA [None]
  - EMOTIONAL DISORDER [None]
  - MIGRAINE [None]
  - CONTUSION [None]
  - GAIT DISTURBANCE [None]
  - PHOTOPHOBIA [None]
  - HYPOACUSIS [None]
